FAERS Safety Report 12951094 (Version 1)
Quarter: 2016Q4

REPORT INFORMATION
  Report Type: Spontaneous
  Country: US (occurrence: US)
  Receive Date: 20161117
  Receipt Date: 20161117
  Transmission Date: 20170207
  Serious: Yes (Other)
  Sender: FDA-Public Use
  Company Number: US-PFIZER INC-2016530188

PATIENT
  Age: 42 Year
  Sex: Female

DRUGS (1)
  1. DEPO-PROVERA [Suspect]
     Active Substance: MEDROXYPROGESTERONE ACETATE
     Indication: CONTRACEPTION
     Dosage: UNK
     Dates: end: 2013

REACTIONS (10)
  - Abortion spontaneous [Unknown]
  - Drug ineffective [Unknown]
  - Blood oestrogen decreased [Not Recovered/Not Resolved]
  - Infertility female [Unknown]
  - Anger [Unknown]
  - Unintended pregnancy [Unknown]
  - Chills [Unknown]
  - Pain [Unknown]
  - Vomiting [Unknown]
  - Blood cholesterol increased [Unknown]
